FAERS Safety Report 5120903-2 (Version None)
Quarter: 2006Q4

REPORT INFORMATION
  Report Type: 
  Country: None (occurrence: None)
  Receive Date: 20061003
  Receipt Date: 20061003
  Transmission Date: 20070319
  Serious: Yes (Other)
  Sender: FDA-Public Use
  Company Number: None

PATIENT
  Age: 37 Year
  Sex: Female
  Weight: 64.8644 kg

DRUGS (1)
  1. CARBOPLATIN [Suspect]
     Indication: METASTATIC SQUAMOUS CELL CARCINOMA
     Dosage: 650MG EVERY 21 DAYS IV DRIP
     Route: 041
     Dates: start: 20060929, end: 20060929

REACTIONS (5)
  - DYSPNOEA [None]
  - HOT FLUSH [None]
  - INFUSION RELATED REACTION [None]
  - PARAESTHESIA [None]
  - PRURITUS [None]
